FAERS Safety Report 25875374 (Version 1)
Quarter: 2025Q4

REPORT INFORMATION
  Report Type: Spontaneous
  Country: EU (occurrence: EU)
  Receive Date: 20251003
  Receipt Date: 20251003
  Transmission Date: 20260118
  Serious: Yes (Other)
  Sender: CELLTRION
  Company Number: EU-ROCHE-3218422

PATIENT

DRUGS (11)
  1. RITUXIMAB [Suspect]
     Active Substance: RITUXIMAB
     Indication: Diffuse large B-cell lymphoma
     Dosage: FIRST LINE WITH CHOP
     Route: 065
     Dates: start: 20210208, end: 20210705
  2. RITUXIMAB [Suspect]
     Active Substance: RITUXIMAB
     Dosage: SECOND LINE WITH GEMOX AND TAFASITAMAB
     Route: 065
     Dates: start: 20220118, end: 20220513
  3. RITUXIMAB [Suspect]
     Active Substance: RITUXIMAB
     Dosage: THIRD LINE WITH POLATUZUMAB AND BENDAMUSTINE
     Route: 065
     Dates: start: 20220715, end: 20220717
  4. TAFASITAMAB [Suspect]
     Active Substance: TAFASITAMAB
     Indication: Diffuse large B-cell lymphoma
     Dosage: SECOND LINE WITH RITUXIMAB AND GEMOX
     Route: 065
     Dates: start: 20220118, end: 20220513
  5. CYCLOPHOSPHAMIDE [Suspect]
     Active Substance: CYCLOPHOSPHAMIDE
     Indication: Diffuse large B-cell lymphoma
     Dosage: FIRST LINE WITH RITUXIMAB
     Route: 065
     Dates: start: 20210208, end: 20210705
  6. DOXORUBICIN [Suspect]
     Active Substance: DOXORUBICIN
     Indication: Diffuse large B-cell lymphoma
     Dosage: FIRST LINE WITH RITUXIMAB
     Route: 065
     Dates: start: 20210208, end: 20210705
  7. VINCRISTINE [Suspect]
     Active Substance: VINCRISTINE
     Indication: Diffuse large B-cell lymphoma
     Dosage: FIRST LINE WITH RITUXIMAB
     Route: 065
     Dates: start: 20210208, end: 20210705
  8. PREDNISONE [Suspect]
     Active Substance: PREDNISONE
     Indication: Diffuse large B-cell lymphoma
     Dosage: FIRST LINE WITH RITUXIMAB
     Route: 065
     Dates: start: 20210208, end: 20210705
  9. POLIVY [Suspect]
     Active Substance: POLATUZUMAB VEDOTIN-PIIQ
     Indication: Diffuse large B-cell lymphoma
     Dosage: THIRD LINE WITH RITUXIMAB AND BENDAMUSTINE
     Route: 065
     Dates: start: 20220715, end: 20220717
  10. BENDAMUSTINE [Suspect]
     Active Substance: BENDAMUSTINE
     Indication: Diffuse large B-cell lymphoma
     Dosage: THIRD LINE WITH RITUIMAB AND POLATUZUMAB
     Route: 065
     Dates: start: 20220715, end: 20220717
  11. GEMFIBROZIL [Suspect]
     Active Substance: GEMFIBROZIL
     Indication: Diffuse large B-cell lymphoma
     Dosage: SECOND LINE WITH RITUXIMAB AND TAFASITAMAB
     Route: 065
     Dates: start: 20220118, end: 20220513

REACTIONS (1)
  - Disease progression [Not Recovered/Not Resolved]
